FAERS Safety Report 9803084 (Version 1)
Quarter: 2014Q1

REPORT INFORMATION
  Report Type: Spontaneous
  Country: IR (occurrence: IR)
  Receive Date: 20140108
  Receipt Date: 20140108
  Transmission Date: 20141002
  Serious: Yes (Other)
  Sender: FDA-Public Use
  Company Number: IR-BAYER-2014-000460

PATIENT
  Age: 33 Year
  Sex: Female

DRUGS (1)
  1. INTERFERON BETA - 1B [Suspect]
     Indication: MULTIPLE SCLEROSIS
     Dosage: UNK
     Dates: start: 2009

REACTIONS (3)
  - Pulmonary sarcoidosis [Recovered/Resolved]
  - Erythema nodosum [Recovered/Resolved]
  - Breast inflammation [Recovered/Resolved]
